FAERS Safety Report 5697718-X (Version None)
Quarter: 2008Q2

REPORT INFORMATION
  Report Type: 
  Country: None (occurrence: None)
  Receive Date: 20080408
  Receipt Date: 20080401
  Transmission Date: 20081010
  Serious: Yes (Other)
  Sender: FDA-Public Use
  Company Number: B0512621A

PATIENT

DRUGS (2)
  1. LAMICTAL [Suspect]
     Indication: DRUG USE FOR UNKNOWN INDICATION
     Dosage: 100MG TWICE PER DAY
     Route: 065
  2. ANTICONVULSANTS [Concomitant]

REACTIONS (4)
  - HEAT RASH [None]
  - PSORIASIS [None]
  - RASH [None]
  - STEVENS-JOHNSON SYNDROME [None]
